FAERS Safety Report 10444356 (Version 1)
Quarter: 2014Q3

REPORT INFORMATION
  Report Type: Spontaneous
  Country: TR (occurrence: None)
  Receive Date: 20140908
  Receipt Date: 20140908
  Transmission Date: 20150326
  Serious: Yes (Other)
  Sender: FDA-Public Use
  Company Number: 2014VER00202

PATIENT
  Age: 22 Year
  Sex: Male

DRUGS (1)
  1. ISOTRETINOIN (ISOTRETINOIN) UNKNOWN [Suspect]
     Active Substance: ISOTRETINOIN

REACTIONS (2)
  - Sacroiliitis [None]
  - Costochondritis [None]
